FAERS Safety Report 5527724-7 (Version None)
Quarter: 2007Q4

REPORT INFORMATION
  Report Type: 
  Country: None (occurrence: None)
  Receive Date: 20071128
  Receipt Date: 20071116
  Transmission Date: 20080405
  Serious: Yes (Life-Threatening, Hospitalization)
  Sender: FDA-Public Use
  Company Number: JP-TYCO HEALTHCARE/MALLINCKRODT-T200701436

PATIENT

DRUGS (4)
  1. OPTIRAY 300 [Suspect]
     Indication: ARTERIOGRAM CORONARY
     Dosage: 30 ML, SINGLE
     Route: 013
     Dates: start: 20071115, end: 20071115
  2. HEPARIN [Concomitant]
     Indication: ARTERIOGRAM CORONARY
     Dosage: 5,000 UNITS
     Route: 013
     Dates: start: 20071115, end: 20071115
  3. PROCAINE HYDROCHLORIDE INJ [Concomitant]
     Indication: ARTERIOGRAM CORONARY
     Dosage: 5 ML, UNK
     Route: 058
     Dates: start: 20071115, end: 20071115
  4. NITROGLYCERIN [Concomitant]
     Indication: ARTERIOGRAM CORONARY
     Dosage: .1 MG, UNK
     Route: 013
     Dates: start: 20071115, end: 20071115

REACTIONS (1)
  - ANAPHYLACTIC SHOCK [None]
